FAERS Safety Report 16192126 (Version 1)
Quarter: 2019Q2

REPORT INFORMATION
  Report Type: Spontaneous
  Country: GB (occurrence: GB)
  Receive Date: 20190412
  Receipt Date: 20190412
  Transmission Date: 20190711
  Serious: Yes (Death)
  Sender: FDA-Public Use
  Company Number: GB-PFIZER INC-2019152516

PATIENT
  Age: 67 Year
  Sex: Male

DRUGS (11)
  1. PARACETAMOL [Suspect]
     Active Substance: ACETAMINOPHEN
     Dosage: 500 MG, (ONE TO BE TAKEN EVERY 4-6 HOURS UP TO FOUR TIMES A DAY)
  2. BRALTUS [Suspect]
     Active Substance: TIOTROPIUM BROMIDE
     Dosage: 10 UG, 1X/DAY (AT THE SAME TIME OF DAY) (ZONDA INHALER)
     Route: 055
  3. FOSTAIR [Suspect]
     Active Substance: BECLOMETHASONE\FORMOTEROL
     Dosage: 2 DF, 1X/DAY (100MICROGRAMS/DOSE 6MICROGRAMS/DOSE)
     Route: 055
  4. VENTOLIN [Suspect]
     Active Substance: ALBUTEROL SULFATE
     Dosage: 1-4 PUFFS IN VOLUMATIC IF VERY WHEEZY ONLY
  5. SIMVASTATIN. [Suspect]
     Active Substance: SIMVASTATIN
     Dosage: 20 MG, 1X/DAY (NIGHT)
  6. SPIRONOLACTONE. [Suspect]
     Active Substance: SPIRONOLACTONE
     Dosage: 2 DF, 1X/DAY (EACH MORNING)
  7. VITAMIN B COMPOUND STRONG [Suspect]
     Active Substance: NIACINAMIDE\PYRIDOXINE HYDROCHLORIDE\RIBOFLAVIN\THIAMINE HYDROCHLORIDE
     Dosage: 1 DF, 1X/DAY
  8. FERROUS FUMARATE [Suspect]
     Active Substance: FERROUS FUMARATE
     Dosage: 420 MG, 1X/DAY
  9. FUROSEMIDE. [Suspect]
     Active Substance: FUROSEMIDE
     Dosage: 160 MG, 1X/DAY
  10. XARELTO [Suspect]
     Active Substance: RIVAROXABAN
     Dosage: 20 MG, 1X/DAY (WITH FOOD)
  11. OMEPRAZOLE. [Suspect]
     Active Substance: OMEPRAZOLE
     Dosage: 20 MG, 1X/DAY

REACTIONS (1)
  - Sudden death [Fatal]
